FAERS Safety Report 13375633 (Version 2)
Quarter: 2017Q3

REPORT INFORMATION
  Report Type: Spontaneous
  Country: US (occurrence: US)
  Receive Date: 20170328
  Receipt Date: 20170719
  Transmission Date: 20171127
  Serious: Yes (Other)
  Sender: FDA-Public Use
  Company Number: US-ROCHE-1910486

PATIENT
  Sex: Female
  Weight: 72.64 kg

DRUGS (2)
  1. XELODA [Suspect]
     Active Substance: CAPECITABINE
     Dosage: 2 TABS IN AM, 3 TABS IN PM ;ONGOING: YES
     Route: 065
  2. XELODA [Suspect]
     Active Substance: CAPECITABINE
     Indication: BREAST CANCER METASTATIC
     Dosage: 3 TABS IN AM 3 IN PM ;ONGOING: NO
     Route: 048
     Dates: start: 2016

REACTIONS (13)
  - Pain in extremity [Unknown]
  - Arthralgia [Unknown]
  - Stomatitis [Unknown]
  - Tendonitis [Unknown]
  - Skin ulcer [Unknown]
  - Skin exfoliation [Unknown]
  - Bone pain [Unknown]
  - Tendon pain [Unknown]
  - Constipation [Unknown]
  - Haemorrhage [Unknown]
  - Ill-defined disorder [Unknown]
  - Pain [Unknown]
  - Stevens-Johnson syndrome [Unknown]
